FAERS Safety Report 4935831-2 (Version None)
Quarter: 2006Q1

REPORT INFORMATION
  Report Type: 
  Country: None (occurrence: None)
  Receive Date: 20060127
  Receipt Date: 20051222
  Transmission Date: 20060701
  Serious: Yes (Other)
  Sender: FDA-Public Use
  Company Number: 2005154202

PATIENT
  Age: 33 Year
  Sex: Male
  Weight: 83.9154 kg

DRUGS (5)
  1. LYRICA [Suspect]
     Indication: CONVULSION
     Dosage: 100 MG (75 MG, 2 IN 1 D), ORAL
     Route: 048
     Dates: start: 20051103, end: 20051107
  2. XANAX [Suspect]
     Indication: ILL-DEFINED DISORDER
     Dosage: ORAL
     Route: 048
     Dates: end: 20051019
  3. TRILEPTAL [Suspect]
     Indication: ILL-DEFINED DISORDER
     Dosage: 1200 MG (600 MG, 2 IN 1 D)
     Dates: end: 20051019
  4. ATENOLOL [Concomitant]
  5. LIPITOR [Concomitant]

REACTIONS (2)
  - MUSCLE SPASMS [None]
  - MUSCLE TWITCHING [None]
